FAERS Safety Report 9647760 (Version 1)
Quarter: 2013Q4

REPORT INFORMATION
  Report Type: Report from Study
  Country: CA (occurrence: CA)
  Receive Date: 20131028
  Receipt Date: 20131028
  Transmission Date: 20140711
  Serious: Yes (Other)
  Sender: FDA-Public Use
  Company Number: CA-JNJFOC-20131011942

PATIENT
  Sex: Male
  Weight: 54.43 kg

DRUGS (1)
  1. REMICADE [Suspect]
     Indication: ANKYLOSING SPONDYLITIS
     Route: 042
     Dates: start: 201210, end: 201303

REACTIONS (3)
  - Joint swelling [Unknown]
  - Local swelling [Unknown]
  - Blood blister [Unknown]
